FAERS Safety Report 6075367-1 (Version None)
Quarter: 2009Q1

REPORT INFORMATION
  Report Type: 
  Country: None (occurrence: None)
  Receive Date: 20090212
  Receipt Date: 20080305
  Transmission Date: 20090719
  Serious: No
  Sender: FDA-Public Use
  Company Number: US-BAUSCH-2008BL000993

PATIENT
  Age: 48 Year
  Sex: Male

DRUGS (2)
  1. FLUNISOLIDE NASAL SOLUTION USP 0.025% [Suspect]
     Indication: HYPERSENSITIVITY
     Route: 045
     Dates: start: 20060101, end: 20080101
  2. FLUNISOLIDE NASAL SOLUTION USP 0.025% [Suspect]
     Route: 045
     Dates: start: 20080108

REACTIONS (2)
  - ARTHRALGIA [None]
  - INSOMNIA [None]
